FAERS Safety Report 7732365-7 (Version None)
Quarter: 2011Q3

REPORT INFORMATION
  Report Type: 
  Country: None (occurrence: None)
  Receive Date: 20110906
  Receipt Date: 20110825
  Transmission Date: 20111222
  Serious: Yes (Hospitalization, Other)
  Sender: FDA-Public Use
  Company Number: US-ASTRAZENECA-2011SE46695

PATIENT
  Age: 744 Month
  Sex: Female
  Weight: 55.3 kg

DRUGS (14)
  1. ANESTHESIA [Suspect]
     Route: 065
  2. TEMAZEPAM [Concomitant]
     Indication: SLEEP DISORDER
     Route: 048
  3. STIRIVA [Concomitant]
     Indication: CHRONIC OBSTRUCTIVE PULMONARY DISEASE
     Route: 048
  4. GELANTOMIN [Concomitant]
     Route: 048
     Dates: start: 20070101
  5. AMITRIPTOLYN [Concomitant]
     Indication: SLEEP DISORDER
     Route: 048
  6. HYDROCORTIZONE [Concomitant]
     Indication: ADDISON'S DISEASE
     Dosage: 20 MG+10 MG BID
     Route: 048
     Dates: start: 20090101
  7. VENLAFAXIN HCL XR [Concomitant]
     Indication: MEMORY IMPAIRMENT
     Route: 048
     Dates: start: 20090801
  8. LYRICA [Concomitant]
     Indication: FIBROMYALGIA
     Route: 048
     Dates: start: 20080101
  9. NEFECARBIMAL [Concomitant]
     Indication: MUSCLE RELAXANT THERAPY
     Route: 048
     Dates: start: 20040101
  10. TIZANIDINE HCL [Concomitant]
     Indication: MUSCLE RELAXANT THERAPY
     Route: 048
  11. TOPROL-XL [Suspect]
     Indication: TACHYCARDIA
     Route: 048
     Dates: start: 20050101
  12. DELOTED [Concomitant]
     Indication: PAIN
  13. KEDTRA [Concomitant]
     Indication: CONVULSION
     Route: 048
     Dates: start: 20100101
  14. BENADRYL [Concomitant]
     Indication: SINUS DISORDER
     Route: 048
     Dates: start: 19700101

REACTIONS (5)
  - OVERDOSE [None]
  - MUSCULOSKELETAL DISORDER [None]
  - SPINAL OSTEOARTHRITIS [None]
  - MENINGITIS [None]
  - MALAISE [None]
